FAERS Safety Report 11236935 (Version 1)
Quarter: 2015Q3

REPORT INFORMATION
  Report Type: Report from Study
  Country: US (occurrence: US)
  Receive Date: 20150703
  Receipt Date: 20150703
  Transmission Date: 20151125
  Serious: No
  Sender: FDA-Public Use
  Company Number: PHEH2015US009846

PATIENT
  Age: 58 Year
  Sex: Female

DRUGS (4)
  1. EXTAVIA [Suspect]
     Active Substance: INTERFERON BETA-1B
     Indication: MULTIPLE SCLEROSIS
     Dosage: 0.25 ML (1/4 DOSE) (WEEK 1), QOD
     Route: 058
     Dates: start: 20150511
  2. EXTAVIA [Suspect]
     Active Substance: INTERFERON BETA-1B
     Dosage: 0.75 ML (3/4 DOSE) (WEEK 3), QOD
     Route: 058
  3. EXTAVIA [Suspect]
     Active Substance: INTERFERON BETA-1B
     Dosage: 0.5 ML (1/2 DOSE) (WEEK 2), QOD
     Route: 058
  4. EXTAVIA [Suspect]
     Active Substance: INTERFERON BETA-1B
     Dosage: 1 ML (FULL DOSE) (WEEK 4), QOD
     Route: 058

REACTIONS (2)
  - Injection site pain [Unknown]
  - Head discomfort [Unknown]

NARRATIVE: CASE EVENT DATE: 20150515
